FAERS Safety Report 24538018 (Version 1)
Quarter: 2024Q4

REPORT INFORMATION
  Report Type: Spontaneous
  Country: GB (occurrence: GB)
  Receive Date: 20241023
  Receipt Date: 20241023
  Transmission Date: 20250115
  Serious: Yes (Other)
  Sender: SANDOZ
  Company Number: GB-NOVPHSZ-PHHY2019GB158275

PATIENT
  Age: 4 Year
  Sex: Female
  Weight: 16 kg

DRUGS (1)
  1. MOMETASONE FUROATE [Suspect]
     Active Substance: MOMETASONE FUROATE
     Indication: Snoring
     Dosage: 50 UG, UNK
     Route: 045

REACTIONS (5)
  - Pyrexia [Recovered/Resolved]
  - Pyrexia [Recovered/Resolved]
  - Cough [Recovered/Resolved]
  - Chills [Recovered/Resolved]
  - Upper respiratory tract infection [Recovered/Resolved]

NARRATIVE: CASE EVENT DATE: 20190501
